FAERS Safety Report 8306659-0 (Version None)
Quarter: 2012Q1

REPORT INFORMATION
  Report Type: 
  Country: None (occurrence: None)
  Receive Date: 20120326
  Receipt Date: 20110422
  Transmission Date: 20120608
  Serious: Yes (Other)
  Sender: FDA-Public Use
  Company Number: PHHY2011US34311

PATIENT
  Sex: Female

DRUGS (7)
  1. BENADRYL [Concomitant]
  2. PREDNISONE TAB [Concomitant]
  3. NEXIUM [Concomitant]
  4. TASIGNA [Suspect]
     Dosage: 600 MG, QD, ORAL
     Route: 048
  5. ZYRTEC-D (CETIRIZINE HYDROCHLORIDE, PSUEDOEPHEDRINE HYDROCHLORIDE) [Concomitant]
  6. CONCERTA [Concomitant]
  7. FLEXERIL [Concomitant]

REACTIONS (13)
  - MYALGIA [None]
  - ARTHRALGIA [None]
  - RASH [None]
  - ALOPECIA [None]
  - OEDEMA [None]
  - DYSPNOEA [None]
  - DECREASED APPETITE [None]
  - RASH GENERALISED [None]
  - COUGH [None]
  - ERYTHEMA [None]
  - BLISTER [None]
  - PRURITUS [None]
  - PLEURAL EFFUSION [None]
